FAERS Safety Report 4392753-6 (Version None)
Quarter: 2004Q3

REPORT INFORMATION
  Report Type: 
  Country: None (occurrence: None)
  Receive Date: 20040702
  Receipt Date: 20040622
  Transmission Date: 20050211
  Serious: Yes (Death, Other)
  Sender: FDA-Public Use
  Company Number: 143-20785-04060691

PATIENT
  Age: 13 Month

DRUGS (6)
  1. THALOMID [Suspect]
     Indication: MENINGITIS TUBERCULOUS
     Dosage: 24 MG/KG, DIVIDED INTO THREE DOSES., DAILY, ORAL
     Route: 048
  2. ISONIAZID [Concomitant]
  3. RIFAMPICIN [Concomitant]
  4. PYRAZINAMIDE [Concomitant]
  5. ETHIONAMIDE (ETHIONAMIDE) [Concomitant]
  6. PREDNISONE TAB [Concomitant]

REACTIONS (12)
  - BRAIN HERNIATION [None]
  - BRAIN OEDEMA [None]
  - BRAIN STEM SYNDROME [None]
  - CEREBRAL INFARCTION [None]
  - COMA [None]
  - DECEREBRATION [None]
  - HEPATOSPLENOMEGALY [None]
  - HYDROCEPHALUS [None]
  - HYPERSENSITIVITY [None]
  - HYPERVENTILATION [None]
  - PYREXIA [None]
  - RASH [None]
